FAERS Safety Report 4439980-7 (Version None)
Quarter: 2004Q3

REPORT INFORMATION
  Report Type: 
  Country: None (occurrence: None)
  Receive Date: 20040902
  Receipt Date: 20040826
  Transmission Date: 20050211
  Serious: Yes (Hospitalization)
  Sender: FDA-Public Use
  Company Number: FR-BRISTOL-MYERS SQUIBB COMPANY-12687984

PATIENT
  Age: 58 Year
  Sex: Female

DRUGS (5)
  1. GLUCOPHAGE [Suspect]
     Dosage: DOSE:  10-15 TABLETS
     Route: 048
     Dates: start: 20040825, end: 20040825
  2. NOVONORM [Suspect]
     Route: 048
     Dates: start: 20040825, end: 20040825
  3. HYZAAR [Suspect]
     Route: 048
     Dates: start: 20040825, end: 20040825
  4. SINTROM [Suspect]
     Route: 048
     Dates: start: 20040825, end: 20040825
  5. TERCIAN [Concomitant]
     Indication: DEPRESSION
     Dosage: DURATION OF THERAPY:  ^FOR A LONG TIME^

REACTIONS (5)
  - HYPOGLYCAEMIA [None]
  - HYPOTENSION [None]
  - INTERNATIONAL NORMALISED RATIO INCREASED [None]
  - OVERDOSE [None]
  - SUICIDE ATTEMPT [None]
